FAERS Safety Report 24872431 (Version 1)
Quarter: 2025Q1

REPORT INFORMATION
  Report Type: Spontaneous
  Country: NL (occurrence: NL)
  Receive Date: 20250122
  Receipt Date: 20250122
  Transmission Date: 20250409
  Serious: Yes (Death)
  Sender: ROCHE
  Company Number: NL-ROCHE-10000176065

PATIENT
  Age: 73 Year
  Sex: Male

DRUGS (13)
  1. MYCOPHENOLATE MOFETIL [Suspect]
     Active Substance: MYCOPHENOLATE MOFETIL
     Indication: Systemic lupus erythematosus
     Dosage: FOR FIVE MONTHS
     Route: 065
  2. MYCOPHENOLATE MOFETIL [Suspect]
     Active Substance: MYCOPHENOLATE MOFETIL
     Indication: Nephritis
  3. PREDNISOLONE [Suspect]
     Active Substance: PREDNISOLONE
     Indication: Systemic lupus erythematosus
     Dosage: FOR FIVE MONTHS
     Route: 065
  4. PREDNISOLONE [Suspect]
     Active Substance: PREDNISOLONE
     Indication: Nephritis
  5. FUROSEMIDE [Concomitant]
     Active Substance: FUROSEMIDE
  6. FUROSEMIDE [Concomitant]
     Active Substance: FUROSEMIDE
  7. AMLODIPINE [Concomitant]
     Active Substance: AMLODIPINE BESYLATE
     Indication: Hypertension
  8. GANCICLOVIR [Concomitant]
     Active Substance: GANCICLOVIR
  9. ATROPINE [Concomitant]
     Active Substance: ATROPINE
  10. CEFTRIAXONE [Concomitant]
     Active Substance: CEFTRIAXONE
  11. HEPARIN [Concomitant]
     Active Substance: HEPARIN SODIUM
  12. NADROPARIN [Concomitant]
     Active Substance: NADROPARIN
     Dosage: 7600 IE
     Route: 058
  13. VORICONAZOLE [Concomitant]
     Active Substance: VORICONAZOLE
     Route: 042

REACTIONS (11)
  - Disseminated aspergillosis [Fatal]
  - Myocardiac abscess [Fatal]
  - Myocarditis infectious [Fatal]
  - Brain abscess [Fatal]
  - Lung abscess [Fatal]
  - Coma [Fatal]
  - Respiratory failure [Fatal]
  - Cerebral haemorrhage [Fatal]
  - Brain herniation [Fatal]
  - Cerebellar haemorrhage [Fatal]
  - Intraventricular haemorrhage [Fatal]
